FAERS Safety Report 9771834 (Version 1)
Quarter: 2013Q3

REPORT INFORMATION
  Report Type: Spontaneous
  Country: US (occurrence: None)
  Receive Date: 20130925
  Receipt Date: 20130925
  Transmission Date: 20140515
  Serious: Yes (Hospitalization, Other)
  Sender: FDA-Public Use
  Company Number: ADR-2012-00949

PATIENT
  Sex: Male

DRUGS (1)
  1. LIORESAL INTRATHECAL (BACLOFEN INJECTION) 2000 MCG/ML [Suspect]
     Indication: PAIN

REACTIONS (11)
  - Snoring [None]
  - Unresponsive to stimuli [None]
  - Dehydration [None]
  - Overdose [None]
  - General physical condition normal [None]
  - Loss of consciousness [None]
  - Somnolence [None]
  - Lethargy [None]
  - Petit mal epilepsy [None]
  - Disorientation [None]
  - Device issue [None]
